FAERS Safety Report 13575897 (Version 1)
Quarter: 2017Q2

REPORT INFORMATION
  Report Type: Spontaneous
  Country: US (occurrence: US)
  Receive Date: 20170524
  Receipt Date: 20170524
  Transmission Date: 20170830
  Serious: Yes (Hospitalization)
  Sender: FDA-Public Use
  Company Number: US-RAPTOR-RAP-001181-2016

PATIENT
  Age: 2 Year
  Sex: Male
  Weight: 8.42 kg

DRUGS (1)
  1. PROCYSBI DELAYED-RELEASE [Suspect]
     Active Substance: CYSTEAMINE BITARTRATE
     Indication: CYSTINOSIS
     Dosage: 4 CAPSULES, EVERY 12 HOURS

REACTIONS (5)
  - Gastrointestinal disorder [Unknown]
  - Vomiting [Unknown]
  - Amino acid level increased [Unknown]
  - Nausea [Unknown]
  - Diarrhoea [Unknown]
